FAERS Safety Report 9826129 (Version 1)
Quarter: 2014Q1

REPORT INFORMATION
  Report Type: Spontaneous
  Country: FR (occurrence: None)
  Receive Date: 20140115
  Receipt Date: 20140115
  Transmission Date: 20141002
  Serious: Yes (Hospitalization)
  Sender: FDA-Public Use
  Company Number: NL01PV14.35034

PATIENT
  Age: 85 Year
  Sex: Female

DRUGS (8)
  1. ZOLPIDEM [Suspect]
     Indication: PRODUCT USED FOR UNKNOWN INDICATION
  2. PRAVASTATINE [Suspect]
  3. RILMENIDINE [Suspect]
  4. BETAXOLOL [Suspect]
  5. ESOMEPRAZOLE (ESOMEPRAZOLE) [Suspect]
  6. CANDESARTAN [Suspect]
     Route: 048
  7. HYDROCHLOROTHIAZIDE (HYDROCHLOROTHIAZIDE) [Suspect]
     Route: 048
  8. ASPIRIN (ACETYLSALICYLIC ACID) [Suspect]

REACTIONS (4)
  - Hyponatraemia [None]
  - Fall [None]
  - Head injury [None]
  - Cerebral haematoma [None]
